FAERS Safety Report 20486714 (Version 1)
Quarter: 2022Q1

REPORT INFORMATION
  Report Type: Spontaneous
  Country: US (occurrence: None)
  Receive Date: 20220217
  Receipt Date: 20220217
  Transmission Date: 20220423
  Serious: Yes (Hospitalization)
  Sender: FDA-Public Use
  Company Number: None

PATIENT
  Age: 85 Year
  Sex: Male
  Weight: 76.2 kg

DRUGS (3)
  1. CARBOPLATIN [Suspect]
     Active Substance: CARBOPLATIN
     Dates: end: 20211126
  2. PEMBROLIZUMAB [Suspect]
     Active Substance: PEMBROLIZUMAB
     Dates: end: 20220128
  3. ALIMTA [Suspect]
     Active Substance: PEMETREXED DISODIUM
     Dates: end: 20220128

REACTIONS (13)
  - Dizziness [None]
  - Fall [None]
  - Loss of consciousness [None]
  - Syncope [None]
  - Atrial fibrillation [None]
  - Atrioventricular block first degree [None]
  - Ventricular extrasystoles [None]
  - Supraventricular tachycardia [None]
  - Headache [None]
  - Heart rate decreased [None]
  - Supraventricular extrasystoles [None]
  - Hypotension [None]
  - Urinary retention [None]

NARRATIVE: CASE EVENT DATE: 20220208
